FAERS Safety Report 19399543 (Version 1)
Quarter: 2021Q2

REPORT INFORMATION
  Report Type: Spontaneous
  Country: CA (occurrence: CA)
  Receive Date: 20210610
  Receipt Date: 20210610
  Transmission Date: 20210717
  Serious: Yes (Hospitalization, Other)
  Sender: FDA-Public Use
  Company Number: CA-ABBVIE-21K-028-3941499-00

PATIENT
  Age: 21 Year
  Sex: Female

DRUGS (2)
  1. HUMIRA [Suspect]
     Active Substance: ADALIMUMAB
     Indication: HIDRADENITIS
     Route: 058
     Dates: start: 20171005
  2. HUMIRA [Suspect]
     Active Substance: ADALIMUMAB
     Route: 058
     Dates: start: 20180328, end: 20180920

REACTIONS (11)
  - Gait inability [Unknown]
  - Hidradenitis [Unknown]
  - Inflammation [Unknown]
  - Impaired work ability [Unknown]
  - Pain [Unknown]
  - Dysstasia [Unknown]
  - Pain in extremity [Unknown]
  - Drug ineffective [Unknown]
  - Mobility decreased [Unknown]
  - Illness [Unknown]
  - Stress [Unknown]
